FAERS Safety Report 7569128-1 (Version None)
Quarter: 2011Q2

REPORT INFORMATION
  Report Type: 
  Country: None (occurrence: None)
  Receive Date: 20110623
  Receipt Date: 20110616
  Transmission Date: 20111010
  Serious: Yes (Other)
  Sender: FDA-Public Use
  Company Number: US-CEPHALON-2011003127

PATIENT
  Sex: Male

DRUGS (5)
  1. NUVIGIL [Suspect]
     Indication: SLEEP APNOEA SYNDROME
     Route: 048
     Dates: start: 20100601, end: 20110613
  2. DOXYCYCLINE [Concomitant]
     Dates: start: 20110301, end: 20110401
  3. SEPTRA [Concomitant]
     Dates: start: 20110517, end: 20110526
  4. AUGMENTIN '125' [Concomitant]
     Dates: start: 20110301, end: 20110301
  5. BACTRIM [Concomitant]
     Dates: start: 20110517, end: 20110526

REACTIONS (13)
  - DIARRHOEA [None]
  - HYPERSENSITIVITY [None]
  - STAPHYLOCOCCAL INFECTION [None]
  - DYSPNOEA [None]
  - RASH ERYTHEMATOUS [None]
  - SINUSITIS [None]
  - BLISTER [None]
  - SKIN BURNING SENSATION [None]
  - CLOSTRIDIUM DIFFICILE COLITIS [None]
  - DERMATITIS CONTACT [None]
  - PRURITUS [None]
  - WEIGHT DECREASED [None]
  - SKIN EXFOLIATION [None]
